FAERS Safety Report 14518435 (Version 2)
Quarter: 2018Q1

REPORT INFORMATION
  Report Type: Report from Study
  Country: CA (occurrence: CA)
  Receive Date: 20180212
  Receipt Date: 20180213
  Transmission Date: 20180509
  Serious: Yes (Other)
  Sender: FDA-Public Use
  Company Number: CA-HLSUS-2017-CA-001317

PATIENT
  Age: 24 Year
  Sex: Female

DRUGS (1)
  1. CLOZARIL [Suspect]
     Active Substance: CLOZAPINE
     Indication: SCHIZOAFFECTIVE DISORDER
     Dosage: 400 MG/DAY
     Route: 048
     Dates: start: 20171114, end: 201712

REACTIONS (3)
  - Dyspnoea [Unknown]
  - Eosinophilia [Unknown]
  - Tachycardia [Unknown]

NARRATIVE: CASE EVENT DATE: 201711
